FAERS Safety Report 12838173 (Version 1)
Quarter: 2016Q4

REPORT INFORMATION
  Report Type: Report from Study
  Country: BR (occurrence: BR)
  Receive Date: 20161012
  Receipt Date: 20161012
  Transmission Date: 20170207
  Serious: Yes (Hospitalization, Other)
  Sender: FDA-Public Use
  Company Number: PHHY2016BR028121

PATIENT
  Age: 53 Year
  Sex: Female
  Weight: 70 kg

DRUGS (6)
  1. ESCITALOPRAM [Suspect]
     Active Substance: ESCITALOPRAM OXALATE
     Indication: ANXIETY
     Dosage: 10 MG, UNK
     Route: 065
  2. AMITRIPTILINA [Concomitant]
     Active Substance: AMITRIPTYLINE HYDROCHLORIDE
     Indication: DEPRESSION
     Dosage: 1 DF, QD
     Route: 048
  3. FOLIC ACID. [Concomitant]
     Active Substance: FOLIC ACID
     Indication: SICKLE CELL TRAIT
     Dosage: 1 DF, QD
     Route: 065
  4. GILENYA [Suspect]
     Active Substance: FINGOLIMOD HYDROCHLORIDE
     Indication: MYELITIS TRANSVERSE
     Dosage: 0.5 MG, QD
     Route: 048
     Dates: start: 201510
  5. GLIFAGE [Concomitant]
     Active Substance: METFORMIN HYDROCHLORIDE
     Indication: DIABETES MELLITUS
     Dosage: 2 DF, QD
     Route: 048
  6. GILENYA [Suspect]
     Active Substance: FINGOLIMOD HYDROCHLORIDE
     Indication: MULTIPLE SCLEROSIS
     Dosage: 0.5 MG, QD
     Route: 048
     Dates: start: 201508, end: 201509

REACTIONS (29)
  - Abdominal discomfort [Recovered/Resolved]
  - Micturition urgency [Unknown]
  - Limb injury [Not Recovered/Not Resolved]
  - Hypoaesthesia [Recovered/Resolved]
  - Paraesthesia [Not Recovered/Not Resolved]
  - Memory impairment [Not Recovered/Not Resolved]
  - Concomitant disease aggravated [Not Recovered/Not Resolved]
  - Urinary incontinence [Unknown]
  - Abdominal pain lower [Unknown]
  - Decreased activity [Unknown]
  - Crying [Unknown]
  - Central nervous system lesion [Unknown]
  - Bacteriuria [Unknown]
  - White blood cell count decreased [Unknown]
  - Anxiety [Not Recovered/Not Resolved]
  - Musculoskeletal discomfort [Recovering/Resolving]
  - Headache [Unknown]
  - Neck pain [Not Recovered/Not Resolved]
  - Decreased interest [Unknown]
  - Mobility decreased [Unknown]
  - Pain [Recovered/Resolved]
  - Weight increased [Unknown]
  - Asthenia [Recovered/Resolved]
  - Urinary tract infection [Recovered/Resolved]
  - Hemiparesis [Not Recovered/Not Resolved]
  - Back pain [Recovered/Resolved]
  - Depression [Not Recovered/Not Resolved]
  - Sensory disturbance [Not Recovered/Not Resolved]
  - Peripheral swelling [Unknown]

NARRATIVE: CASE EVENT DATE: 201607
